FAERS Safety Report 9309988 (Version 1)
Quarter: 2013Q2

REPORT INFORMATION
  Report Type: Spontaneous
  Country: DE (occurrence: DE)
  Receive Date: 20130527
  Receipt Date: 20130527
  Transmission Date: 20140414
  Serious: Yes (Hospitalization)
  Sender: FDA-Public Use
  Company Number: DE-BIOGENIDEC-2013BI045948

PATIENT
  Age: 49 Year
  Sex: Female
  Weight: 100 kg

DRUGS (2)
  1. AVONEX [Suspect]
     Indication: MULTIPLE SCLEROSIS
     Route: 030
     Dates: start: 20110301
  2. IBUPROFEN [Concomitant]
     Indication: PROPHYLAXIS
     Dates: start: 20110301

REACTIONS (2)
  - Myositis [Recovered/Resolved]
  - Sinusitis [Recovered/Resolved]
